FAERS Safety Report 5267451-7 (Version None)
Quarter: 2007Q1

REPORT INFORMATION
  Report Type: 
  Country: None (occurrence: None)
  Receive Date: 20070312
  Receipt Date: 20070228
  Transmission Date: 20070707
  Serious: Yes (Hospitalization)
  Sender: FDA-Public Use
  Company Number: 233476

PATIENT
  Age: 52 Year
  Sex: Female
  Weight: 72.1 kg

DRUGS (4)
  1. HERCEPTIN [Suspect]
     Indication: BREAST CANCER METASTATIC
     Dosage: 4 MG/KG, SINGLE; INTRAVENOUS, 2 MG/KG, 1/WEEK; INTRAVENOUS
     Route: 042
     Dates: start: 20061127, end: 20061127
  2. HERCEPTIN [Suspect]
     Indication: BREAST CANCER METASTATIC
     Dosage: 4 MG/KG, SINGLE; INTRAVENOUS, 2 MG/KG, 1/WEEK; INTRAVENOUS
     Route: 042
     Dates: start: 20061127
  3. OXYCODONE HCL [Concomitant]
  4. LOPRESSOR [Concomitant]

REACTIONS (10)
  - CHILLS [None]
  - CONFUSIONAL STATE [None]
  - COUGH [None]
  - DYSPNOEA [None]
  - HYPOXIA [None]
  - INFUSION [None]
  - INFUSION RELATED REACTION [None]
  - PYREXIA [None]
  - TACHYCARDIA [None]
  - URINARY INCONTINENCE [None]
